FAERS Safety Report 4748200-5 (Version None)
Quarter: 2005Q3

REPORT INFORMATION
  Report Type: 
  Country: None (occurrence: None)
  Receive Date: 20050818
  Receipt Date: 20050810
  Transmission Date: 20060218
  Serious: Yes (Other)
  Sender: FDA-Public Use
  Company Number: CA-JNJFOC-20050803065

PATIENT
  Age: 43 Year
  Sex: Female

DRUGS (2)
  1. TOPAMAX [Suspect]
  2. TOPAMAX [Suspect]
     Indication: MIGRAINE PROPHYLAXIS

REACTIONS (1)
  - BLINDNESS [None]
